FAERS Safety Report 24231084 (Version 1)
Quarter: 2024Q3

REPORT INFORMATION
  Report Type: Report from Study
  Country: CN (occurrence: CN)
  Receive Date: 20240821
  Receipt Date: 20240821
  Transmission Date: 20241017
  Serious: Yes (Death)
  Sender: ROCHE
  Company Number: CN-ROCHE-10000052121

PATIENT
  Age: 80 Year
  Sex: Female

DRUGS (1)
  1. COLUMVI [Suspect]
     Active Substance: GLOFITAMAB-GXBM
     Indication: Diffuse large B-cell lymphoma
     Route: 042
     Dates: start: 20240325

REACTIONS (6)
  - Cough [Unknown]
  - Pneumonia fungal [Unknown]
  - Decreased immune responsiveness [Unknown]
  - COVID-19 [Unknown]
  - Depressed level of consciousness [Unknown]
  - Condition aggravated [Fatal]

NARRATIVE: CASE EVENT DATE: 20240717
